FAERS Safety Report 15248247 (Version 1)
Quarter: 2018Q3

REPORT INFORMATION
  Report Type: Spontaneous
  Country: US (occurrence: US)
  Receive Date: 20180715
  Receipt Date: 20180715
  Transmission Date: 20181010
  Serious: Yes (Disabling)
  Sender: FDA-Public Use
  Company Number: None

PATIENT
  Age: 57 Year
  Sex: Female
  Weight: 51.75 kg

DRUGS (7)
  1. LIOTHYRONINE [Concomitant]
     Active Substance: LIOTHYRONINE
  2. METRONIDAZOLE. [Concomitant]
     Active Substance: METRONIDAZOLE
  3. VITAMIN D3 [Concomitant]
     Active Substance: CHOLECALCIFEROL
  4. VITAMIN B?1 [Concomitant]
     Active Substance: THIAMINE HYDROCHLORIDE
  5. OMEGA 3 DERIVED FROM FISH [Concomitant]
  6. CHLORHEXIDINE GLUCONATE 0.12% ORAL RINSE, USP [Suspect]
     Active Substance: CHLORHEXIDINE GLUCONATE
     Indication: GINGIVITIS
     Dosage: ?          QUANTITY:15 ML;OTHER ROUTE:SWISH IN MOUTH FOR 30 SECONDS?
     Dates: start: 20171106, end: 20171110
  7. TIROSINT (LEVOTHYROXINE) [Concomitant]

REACTIONS (6)
  - Trichoglossia [None]
  - Insomnia [None]
  - Tongue discomfort [None]
  - Glossodynia [None]
  - Tongue discolouration [None]
  - Hypophagia [None]

NARRATIVE: CASE EVENT DATE: 20171111
